FAERS Safety Report 7338579-2 (Version None)
Quarter: 2011Q1

REPORT INFORMATION
  Report Type: 
  Country: None (occurrence: None)
  Receive Date: 20110308
  Receipt Date: 20110223
  Transmission Date: 20110831
  Serious: Yes (Hospitalization, Other)
  Sender: FDA-Public Use
  Company Number: FR-ELI_LILLY_AND_COMPANY-FR201103001523

PATIENT
  Sex: Female

DRUGS (16)
  1. NEXIUM [Concomitant]
     Indication: GASTRIC PH DECREASED
     Dosage: 40 MG, DAILY (1/D)
     Route: 048
  2. LYRICA [Concomitant]
     Indication: NEURALGIA
     Dosage: 75 MG, 2/D
     Route: 048
  3. IKOREL [Concomitant]
     Indication: ANGINA PECTORIS
     Dosage: 10 MG, DAILY (1/D)
     Route: 048
  4. LEXOMIL [Concomitant]
     Indication: INSOMNIA
     Dosage: 12 MG, DAILY (1/D)
     Route: 048
     Dates: start: 20100120, end: 20100124
  5. PRAVIGARD PAC (COPACKAGED) [Concomitant]
     Indication: BLOOD CHOLESTEROL
     Dosage: 40 MG, DAILY (1/D)
     Route: 048
  6. CYMBALTA [Suspect]
     Indication: DEPRESSION
     Dosage: 60 MG, DAILY (1/D)
     Route: 048
     Dates: start: 20100120, end: 20100124
  7. METFORMINE [Concomitant]
     Indication: DIABETES MELLITUS
     Dosage: 1 D/F, 3/D
     Route: 048
  8. LASIX [Concomitant]
     Indication: HYPERTENSION
     Dosage: 40 MG, DAILY (1/D)
     Route: 048
     Dates: start: 20100120
  9. AMLODIPINE [Concomitant]
     Indication: ARRHYTHMIA
     Dosage: 5 MG, DAILY (1/D)
     Route: 048
  10. PLAVIX [Concomitant]
     Indication: ATHEROSCLEROSIS PROPHYLAXIS
     Dosage: 75 MG, DAILY (1/D)
     Route: 048
  11. NOVOMIX /01475801/ [Concomitant]
     Dosage: 18 IU, EACH EVENING
     Route: 058
  12. ATENOLOL [Concomitant]
     Indication: CARDIAC FAILURE
     Dosage: 100 MG, DAILY (1/D)
     Route: 048
  13. CELEBREX [Concomitant]
     Indication: PAIN
     Dosage: 1 D/F, DAILY (1/D)
     Route: 048
  14. NOVOMIX /01475801/ [Concomitant]
     Indication: DIABETES MELLITUS
     Dosage: 16 IU, EACH MORNING
     Route: 058
  15. PROCORALAN [Concomitant]
     Indication: ANGINA PECTORIS
     Dosage: 5 MG, 2/D
     Route: 048
  16. RAMIPRIL [Concomitant]
     Indication: HYPERTENSION
     Dosage: 10 MG, DAILY (1/D)
     Route: 048

REACTIONS (14)
  - ASTHENIA [None]
  - SPEECH DISORDER [None]
  - SUBDURAL HYGROMA [None]
  - BRADYCARDIA [None]
  - PLATELET COUNT DECREASED [None]
  - ELECTROCARDIOGRAM QT PROLONGED [None]
  - AREFLEXIA [None]
  - GAIT DISTURBANCE [None]
  - IRON DEFICIENCY ANAEMIA [None]
  - BRADYPHRENIA [None]
  - DECREASED APPETITE [None]
  - MALAISE [None]
  - FALL [None]
  - CARDIAC MURMUR [None]
